FAERS Safety Report 20700977 (Version 1)
Quarter: 2022Q2

REPORT INFORMATION
  Report Type: Spontaneous
  Country: US (occurrence: US)
  Receive Date: 20220412
  Receipt Date: 20220412
  Transmission Date: 20220721
  Serious: No
  Sender: FDA-Public Use
  Company Number: US-ABBVIE-21K-163-4173711-00

PATIENT
  Sex: Male

DRUGS (9)
  1. LUPRON [Suspect]
     Active Substance: LEUPROLIDE ACETATE
     Indication: Product used for unknown indication
     Route: 065
     Dates: start: 20141104
  2. LUPRON [Suspect]
     Active Substance: LEUPROLIDE ACETATE
     Route: 065
     Dates: start: 20161121
  3. CASODEX [Suspect]
     Active Substance: BICALUTAMIDE
     Indication: Product used for unknown indication
     Route: 065
     Dates: start: 20161114
  4. ENZALUTAMIDE [Suspect]
     Active Substance: ENZALUTAMIDE
     Indication: Product used for unknown indication
     Route: 065
     Dates: start: 20211001
  5. ABIRATERONE [Concomitant]
     Active Substance: ABIRATERONE
     Indication: Product used for unknown indication
     Dates: start: 20210507
  6. PREDNISONE [Concomitant]
     Active Substance: PREDNISONE
     Indication: Product used for unknown indication
     Dates: start: 20210507
  7. ATEZOLIZUMAB [Concomitant]
     Active Substance: ATEZOLIZUMAB
     Indication: Product used for unknown indication
     Dates: start: 20210817
  8. CABOZANTINIB [Concomitant]
     Active Substance: CABOZANTINIB
     Indication: Product used for unknown indication
     Dates: start: 20210817
  9. TAXOTERE [Concomitant]
     Active Substance: DOCETAXEL
     Indication: Product used for unknown indication

REACTIONS (4)
  - Pulmonary mass [Unknown]
  - Lymphadenopathy [Unknown]
  - Lymphadenopathy [Unknown]
  - Spinal compression fracture [Unknown]

NARRATIVE: CASE EVENT DATE: 20210728
